FAERS Safety Report 10281879 (Version 3)
Quarter: 2014Q3

REPORT INFORMATION
  Report Type: Spontaneous
  Country: IT (occurrence: IT)
  Receive Date: 20140707
  Receipt Date: 20140917
  Transmission Date: 20150326
  Serious: Yes (Hospitalization)
  Sender: FDA-Public Use
  Company Number: IT-SA-2014SA085719

PATIENT
  Age: 88 Year
  Sex: Female

DRUGS (6)
  1. METRONIDAZOLE. [Concomitant]
     Active Substance: METRONIDAZOLE
  2. LASIX [Suspect]
     Active Substance: FUROSEMIDE
     Indication: PRODUCT USED FOR UNKNOWN INDICATION
     Route: 048
     Dates: start: 20140514, end: 20140514
  3. MULTIVITAMIN AND MINERAL SUPPLEMENT [Suspect]
     Active Substance: MINERALS\VITAMINS
     Indication: PRODUCT USED FOR UNKNOWN INDICATION
     Dosage: STRENGTH: 2000 ML
     Route: 042
     Dates: start: 20140514, end: 20140514
  4. OXYGEN. [Concomitant]
     Active Substance: OXYGEN
  5. LIMICAN [Concomitant]
     Route: 030
  6. SELEPARINA [Concomitant]
     Active Substance: NADROPARIN CALCIUM
     Route: 058

REACTIONS (2)
  - Sopor [Not Recovered/Not Resolved]
  - Hypokalaemia [Not Recovered/Not Resolved]

NARRATIVE: CASE EVENT DATE: 20140514
